FAERS Safety Report 8492201-0 (Version None)
Quarter: 2012Q3

REPORT INFORMATION
  Report Type: 
  Country: None (occurrence: None)
  Receive Date: 20120706
  Receipt Date: 20120628
  Transmission Date: 20120928
  Serious: Yes (Hospitalization)
  Sender: FDA-Public Use
  Company Number: US-BAYER-2012-055754

PATIENT
  Age: 31 Year
  Sex: Female
  Weight: 122 kg

DRUGS (15)
  1. YAZ [Suspect]
     Indication: MENSTRUATION IRREGULAR
  2. CITALOPRAM HYDROBROMIDE [Concomitant]
     Dosage: 20 MG, UNK
     Dates: start: 20100726
  3. CEPHALEXIN [Concomitant]
     Dosage: 500 MG, UNK
     Dates: start: 20100825
  4. ZOCOR [Concomitant]
  5. YAZ [Suspect]
     Indication: PREMENSTRUAL SYNDROME
  6. SYNTHROID [Concomitant]
     Indication: HYPOTHYROIDISM
  7. SIMVASTATIN [Concomitant]
     Dosage: 20 MG, UNK
     Dates: start: 20100712, end: 20100728
  8. HYDROCODONE BITARTRATE/HOMATROPINE METHYBROMIDE [Concomitant]
     Dosage: 5 TO 1.5 UNK, UNK
     Dates: start: 20101019
  9. YAZ [Suspect]
     Indication: ACNE
     Dosage: UNK
     Dates: start: 20100801, end: 20101025
  10. IBUPROFEN (ADVIL) [Concomitant]
  11. CELEXA [Concomitant]
     Dosage: 20 MG, QD
     Route: 048
  12. KEFLEX [Concomitant]
     Dosage: UNK
     Dates: start: 20100825
  13. LIPITOR [Concomitant]
     Dosage: UNK
     Dates: start: 20090801, end: 20100101
  14. LEVOTHYROXINE SODIUM [Concomitant]
     Indication: HYPOTHYROIDISM
     Dosage: 125 MCG, UNK
     Dates: start: 20070101
  15. AZITHROMYCIN [Concomitant]
     Dosage: 250 MG, UNK
     Dates: start: 20101019

REACTIONS (19)
  - PAIN [None]
  - COLITIS [None]
  - BUNDLE BRANCH BLOCK RIGHT [None]
  - INJURY [None]
  - CHEST PAIN [None]
  - DEEP VEIN THROMBOSIS [None]
  - DYSPNOEA [None]
  - STRESS [None]
  - TENSION HEADACHE [None]
  - ARTHRALGIA [None]
  - ERYTHEMA [None]
  - TACHYCARDIA [None]
  - PAIN IN EXTREMITY [None]
  - OEDEMA PERIPHERAL [None]
  - DEPRESSION [None]
  - PULMONARY EMBOLISM [None]
  - ANXIETY [None]
  - TENSION [None]
  - MENTAL DISORDER [None]
